FAERS Safety Report 5916127-9 (Version None)
Quarter: 2008Q4

REPORT INFORMATION
  Report Type: 
  Country: None (occurrence: None)
  Receive Date: 20081009
  Receipt Date: 20081009
  Transmission Date: 20090506
  Serious: Yes (Hospitalization)
  Sender: FDA-Public Use
  Company Number: None

PATIENT
  Sex: Male
  Weight: 88 kg

DRUGS (2)
  1. TARCEVA [Suspect]
     Indication: RENAL CELL CARCINOMA
     Dosage: 50MG QOD ORAL
     Route: 048
     Dates: start: 20080909, end: 20081003
  2. SUTENT [Suspect]
     Indication: RENAL CELL CARCINOMA
     Dosage: 150 MG QOD ORAL
     Route: 048
     Dates: start: 20080909, end: 20081003

REACTIONS (3)
  - CONVULSION [None]
  - LOSS OF CONSCIOUSNESS [None]
  - SYNCOPE [None]
